FAERS Safety Report 5140665-2 (Version None)
Quarter: 2006Q4

REPORT INFORMATION
  Report Type: 
  Country: None (occurrence: None)
  Receive Date: 20061025
  Receipt Date: 20061015
  Transmission Date: 20070319
  Serious: Yes (Hospitalization, Other)
  Sender: FDA-Public Use
  Company Number: 2006116716

PATIENT
  Sex: 0

DRUGS (2)
  1. NIFEDIPINE [Suspect]
     Indication: PREGNANCY INDUCED HYPERTENSION
     Dosage: 40 MG (20 MG,2 IN 1 D), PLACENTAL
     Route: 050
     Dates: start: 19991214, end: 19991216
  2. MAGNESIUM CITRATE (MAGNESIUM CITRATE) [Suspect]
     Indication: PREGNANCY INDUCED HYPERTENSION
     Dosage: PLACENTAL
     Route: 050
     Dates: start: 19991214, end: 19991216

REACTIONS (4)
  - CAESAREAN SECTION [None]
  - DRUG EXPOSURE DURING PREGNANCY [None]
  - MATERNAL CONDITION AFFECTING FOETUS [None]
  - PREMATURE BABY [None]
